FAERS Safety Report 5058025-1 (Version None)
Quarter: 2006Q3

REPORT INFORMATION
  Report Type: 
  Country: None (occurrence: None)
  Receive Date: 20060721
  Receipt Date: 20060710
  Transmission Date: 20061208
  Serious: Yes (Hospitalization)
  Sender: FDA-Public Use
  Company Number: CZ-ROCHE-454817

PATIENT
  Age: 41 Year
  Sex: Female

DRUGS (2)
  1. PEGASYS [Suspect]
     Route: 065
     Dates: end: 20060512
  2. PEGASYS [Suspect]
     Route: 065
     Dates: start: 20060624

REACTIONS (4)
  - CHEST DISCOMFORT [None]
  - GUILLAIN-BARRE SYNDROME [None]
  - PALPITATIONS [None]
  - VISION BLURRED [None]
